FAERS Safety Report 6362059-4 (Version None)
Quarter: 2009Q3

REPORT INFORMATION
  Report Type: 
  Country: None (occurrence: None)
  Receive Date: 20090918
  Receipt Date: 20090911
  Transmission Date: 20100115
  Serious: Yes (Hospitalization)
  Sender: FDA-Public Use
  Company Number: PHHO2009BE11156

PATIENT

DRUGS (2)
  1. RAD 666 RAD++PTR [Suspect]
     Indication: RENAL TRANSPLANT
     Dosage: OPEN LABEL
     Route: 048
     Dates: start: 20060824
  2. MYFORTIC [Suspect]
     Indication: RENAL TRANSPLANT
     Dosage: OPEN LABEL
     Route: 048
     Dates: start: 20060824

REACTIONS (1)
  - LUNG DISORDER [None]
